FAERS Safety Report 7755326-0 (Version None)
Quarter: 2011Q3

REPORT INFORMATION
  Report Type: 
  Country: None (occurrence: None)
  Receive Date: 20110914
  Receipt Date: 20110826
  Transmission Date: 20111222
  Serious: Yes (Hospitalization)
  Sender: FDA-Public Use
  Company Number: 11-ADE-SU-0076-ACT

PATIENT
  Age: 66 Year
  Sex: Female
  Weight: 83.9154 kg

DRUGS (11)
  1. PROTONIX [Concomitant]
  2. MICARDIS [Concomitant]
  3. CENTRUM SILVER [Concomitant]
  4. CADUET [Concomitant]
  5. COPAXONE [Concomitant]
  6. AMPYRA [Concomitant]
  7. CALCIUM CARBONATE [Concomitant]
  8. H P ACTHAR [Suspect]
     Indication: MULTIPLE SCLEROSIS
     Dosage: 80 IU SC DAILY X 5 DAYS
     Dates: start: 20110516, end: 20110520
  9. MYSOLINE [Concomitant]
  10. NUVIGIL [Concomitant]
  11. NEXIUM [Concomitant]

REACTIONS (4)
  - HYPOAESTHESIA [None]
  - ASTHENIA [None]
  - VERTIGO [None]
  - THROMBOCYTOPENIA [None]
